FAERS Safety Report 17682190 (Version 2)
Quarter: 2021Q2

REPORT INFORMATION
  Report Type: Report from Study
  Country: CA (occurrence: CA)
  Receive Date: 20200418
  Receipt Date: 20210514
  Transmission Date: 20210716
  Serious: Yes (Death, Other)
  Sender: FDA-Public Use
  Company Number: PHHY2019CA101429

PATIENT
  Sex: Male

DRUGS (2)
  1. VOTRIENT [Suspect]
     Active Substance: PAZOPANIB HYDROCHLORIDE
     Indication: METASTATIC RENAL CELL CARCINOMA
     Dosage: 2 DF, QD (800 MG, QD)
     Route: 048
     Dates: start: 20190419
  2. TYLENOL [Concomitant]
     Active Substance: ACETAMINOPHEN
     Indication: PRODUCT USED FOR UNKNOWN INDICATION
     Dosage: UNK
     Route: 065

REACTIONS (7)
  - Blood creatinine decreased [Recovered/Resolved]
  - Haemoglobin increased [Unknown]
  - Death [Fatal]
  - Nephrolithiasis [Unknown]
  - Renal colic [Unknown]
  - Pain [Recovering/Resolving]
  - Nausea [Unknown]
